FAERS Safety Report 8573598-X (Version None)
Quarter: 2012Q2

REPORT INFORMATION
  Report Type: 
  Country: None (occurrence: None)
  Receive Date: 20120423
  Receipt Date: 20100423
  Transmission Date: 20120825
  Serious: Yes (Hospitalization)
  Sender: FDA-Public Use
  Company Number: PHHY2010US26100

PATIENT
  Age: 29 Year
  Sex: Male
  Weight: 74.8 kg

DRUGS (6)
  1. DEMEROL [Concomitant]
  2. EXJADE [Suspect]
     Dosage: 1000 MG, QD, ORAL
     Route: 048
  3. XOLOX (XOLOX) [Concomitant]
  4. NEMEROL (NEMEROL) [Concomitant]
  5. HYDREA [Concomitant]
  6. OXYCODONE HCL [Concomitant]

REACTIONS (1)
  - SICKLE CELL ANAEMIA WITH CRISIS [None]
